FAERS Safety Report 23506002 (Version 1)
Quarter: 2024Q1

REPORT INFORMATION
  Report Type: Spontaneous
  Country: US (occurrence: None)
  Receive Date: 20240208
  Receipt Date: 20240208
  Transmission Date: 20240410
  Serious: No
  Sender: FDA-Public Use
  Company Number: None

PATIENT
  Sex: Male

DRUGS (2)
  1. TACROLIMUS [Suspect]
     Active Substance: TACROLIMUS
     Indication: Heart transplant
     Dosage: OTHER QUANTITY : 2 CAP AM-1 CAP PM;?FREQUENCY : AS DIRECTED;?
     Route: 048
     Dates: start: 201611
  2. MYCOPHENOLIC ACID [Suspect]
     Active Substance: MYCOPHENOLIC ACID

REACTIONS (3)
  - Oesophageal carcinoma [None]
  - Skin cancer [None]
  - Renal disorder [None]
